FAERS Safety Report 7455459-2 (Version None)
Quarter: 2011Q2

REPORT INFORMATION
  Report Type: 
  Country: None (occurrence: None)
  Receive Date: 20110503
  Receipt Date: 20110429
  Transmission Date: 20111010
  Serious: Yes (Hospitalization, Other)
  Sender: FDA-Public Use
  Company Number: FR-ABBOTT-11P-056-0722588-00

PATIENT
  Sex: Male

DRUGS (3)
  1. STROMECTOL [Suspect]
     Indication: ACARODERMATITIS
     Route: 048
     Dates: start: 20110408, end: 20110408
  2. DARUNAVIR [Suspect]
     Indication: HIV INFECTION
     Route: 048
     Dates: start: 20110401, end: 20110409
  3. NORVIR [Suspect]
     Indication: HIV INFECTION
     Route: 048
     Dates: start: 20110401, end: 20110409

REACTIONS (7)
  - GRAND MAL CONVULSION [None]
  - CONDUCTIVE DEAFNESS [None]
  - HEAD INJURY [None]
  - CONFUSIONAL STATE [None]
  - HEMIPARESIS [None]
  - FALL [None]
  - VERTIGO [None]
